FAERS Safety Report 13997214 (Version 1)
Quarter: 2017Q3

REPORT INFORMATION
  Report Type: Spontaneous
  Country: US (occurrence: US)
  Receive Date: 20170921
  Receipt Date: 20170921
  Transmission Date: 20171128
  Serious: Yes (Life-Threatening, Hospitalization, Other)
  Sender: FDA-Public Use
  Company Number: US-TEVA-806398USA

PATIENT
  Age: 74 Year
  Sex: Female

DRUGS (5)
  1. MORPHINE [Suspect]
     Active Substance: MORPHINE
     Dosage: 350 MG (AFTER 40CC SOLUTION REMOVED)
     Route: 037
  2. MORPHINE [Suspect]
     Active Substance: MORPHINE
     Indication: PAIN
     Route: 037
  3. BUPIVACAINE. [Suspect]
     Active Substance: BUPIVACAINE
     Dosage: 100 MG (AFTER 40CC SOLUTION REMOVED)
     Route: 037
  4. MORHPINE EXTENDED RELEASE [Suspect]
     Active Substance: MORPHINE
     Indication: PAIN
     Route: 037
  5. BUPIVACAINE. [Suspect]
     Active Substance: BUPIVACAINE
     Indication: PAIN
     Route: 037

REACTIONS (6)
  - Depressed level of consciousness [Unknown]
  - Hypotension [Unknown]
  - Toxicity to various agents [Unknown]
  - Sensory loss [Recovering/Resolving]
  - Generalised tonic-clonic seizure [Recovered/Resolved]
  - Hypotonia [Unknown]
